FAERS Safety Report 9017066 (Version 2)
Quarter: 2013Q3

REPORT INFORMATION
  Report Type: Report from Study
  Country: BD (occurrence: BD)
  Receive Date: 20130117
  Receipt Date: 20130822
  Transmission Date: 20140515
  Serious: Yes (Death, Other)
  Sender: FDA-Public Use
  Company Number: PHHY2013BD004034

PATIENT
  Age: 90 Year
  Sex: Female

DRUGS (3)
  1. ACLASTA [Suspect]
     Indication: OSTEOPOROSIS
     Dosage: ONCE YEARLY
     Route: 042
  2. ACLASTA [Suspect]
     Dosage: ONCE YEARLY
     Route: 042
  3. ACLASTA [Suspect]
     Dosage: ONCE YEARLY
     Route: 042
     Dates: start: 20080512

REACTIONS (3)
  - Cerebrovascular accident [Fatal]
  - Diabetes mellitus [Unknown]
  - Hypertension [Unknown]
